FAERS Safety Report 9261008 (Version 1)
Quarter: 2013Q2

REPORT INFORMATION
  Report Type: Spontaneous
  Country: US (occurrence: US)
  Receive Date: 20130429
  Receipt Date: 20130429
  Transmission Date: 20140414
  Serious: No
  Sender: FDA-Public Use
  Company Number: US-AMGEN-USASP2012031009

PATIENT
  Sex: 0

DRUGS (2)
  1. SENSIPAR [Suspect]
     Indication: DIALYSIS
     Route: 048
  2. BETA BLOCKING AGENTS [Concomitant]

REACTIONS (1)
  - Aggression [Unknown]
